FAERS Safety Report 12610102 (Version 1)
Quarter: 2016Q3

REPORT INFORMATION
  Report Type: Spontaneous
  Country: US (occurrence: None)
  Receive Date: 20160729
  Receipt Date: 20160729
  Transmission Date: 20161109
  Serious: Yes (Disabling, Other)
  Sender: FDA-Public Use
  Company Number: None

PATIENT
  Age: 27 Year
  Sex: Female
  Weight: 68.04 kg

DRUGS (4)
  1. CIPRO [Suspect]
     Active Substance: CIPROFLOXACIN HYDROCHLORIDE
     Indication: URINARY TRACT INFECTION
     Route: 048
     Dates: start: 20160506, end: 20160506
  2. SYNTHROID [Concomitant]
     Active Substance: LEVOTHYROXINE SODIUM
  3. IBUPROFEN. [Concomitant]
     Active Substance: IBUPROFEN
  4. MULTIVITAMIN [Concomitant]
     Active Substance: VITAMINS

REACTIONS (34)
  - Hallucination [None]
  - Panic reaction [None]
  - Decreased appetite [None]
  - Poor peripheral circulation [None]
  - Palpitations [None]
  - Photosensitivity reaction [None]
  - Asthma [None]
  - Blood pressure fluctuation [None]
  - Muscular weakness [None]
  - Feeling abnormal [None]
  - Headache [None]
  - Muscle spasms [None]
  - Anxiety [None]
  - Hypothyroidism [None]
  - Dyskinesia [None]
  - Cold sweat [None]
  - Muscle twitching [None]
  - Coeliac disease [None]
  - Multiple allergies [None]
  - Photopsia [None]
  - Chills [None]
  - Hypoaesthesia [None]
  - Inflammation [None]
  - Chest pain [None]
  - Nystagmus [None]
  - Visual impairment [None]
  - Fine motor skill dysfunction [None]
  - Intracranial pressure increased [None]
  - Insomnia [None]
  - Vertigo [None]
  - Tachycardia [None]
  - Vitreous floaters [None]
  - Paraesthesia [None]
  - Dyspnoea [None]

NARRATIVE: CASE EVENT DATE: 20160506
